FAERS Safety Report 4702206-0 (Version None)
Quarter: 2005Q2

REPORT INFORMATION
  Report Type: 
  Country: None (occurrence: None)
  Receive Date: 20050628
  Receipt Date: 20050628
  Transmission Date: 20051028
  Serious: Yes (Other)
  Sender: FDA-Public Use
  Company Number: None

PATIENT
  Age: 32 Year
  Sex: Female
  Weight: 56.6996 kg

DRUGS (1)
  1. AUGMENTIN XR [Suspect]
     Indication: LABYRINTHITIS
     Dosage: 2    DAILY    ORAL
     Route: 048
     Dates: start: 20050207, end: 20050228

REACTIONS (4)
  - ALOPECIA [None]
  - SKIN DISCOLOURATION [None]
  - SWOLLEN TONGUE [None]
  - URTICARIA GENERALISED [None]
